FAERS Safety Report 16014426 (Version 1)
Quarter: 2019Q1

REPORT INFORMATION
  Report Type: Spontaneous
  Country: US (occurrence: US)
  Receive Date: 20190227
  Receipt Date: 20190227
  Transmission Date: 20190418
  Serious: No
  Sender: FDA-Public Use
  Company Number: US-B.I. PHARMACEUTICALS,INC./RIDGEFIELD-2019-BI-007722

PATIENT
  Age: 76 Year
  Sex: Female

DRUGS (3)
  1. SPIRIVA RESPIMAT [Suspect]
     Active Substance: TIOTROPIUM BROMIDE
     Indication: CHRONIC OBSTRUCTIVE PULMONARY DISEASE
     Dosage: 2 INHALATIONS ONE A DAY;  FORM STRENGTH: 2.5 MCG; INHALATION SPRAY?YES ?DOSE NOT CHANGED
     Route: 055
     Dates: start: 20190109
  2. LEVOTHYROXINE. [Concomitant]
     Active Substance: LEVOTHYROXINE
     Indication: HYPOTHYROIDISM
     Dosage: ONE TABLET DAILY;  FORM STRENGTH: 50 MCG; FORMULATION: TABLET
     Route: 048
     Dates: start: 2013
  3. OMEPRAZOLE. [Concomitant]
     Active Substance: OMEPRAZOLE
     Indication: GASTROOESOPHAGEAL REFLUX DISEASE
     Dosage: ONE CAPSULE BID;  FORM STRENGTH: 20MG; FORMULATION: CAPSULE
     Route: 048

REACTIONS (1)
  - Mycobacterium avium complex infection [Unknown]

NARRATIVE: CASE EVENT DATE: 201901
